FAERS Safety Report 9751332 (Version 1)
Quarter: 2013Q4

REPORT INFORMATION
  Report Type: Spontaneous
  Country: US (occurrence: US)
  Receive Date: 20131212
  Receipt Date: 20131212
  Transmission Date: 20140711
  Serious: No
  Sender: FDA-Public Use
  Company Number: US-BIOGENIDEC-2013BI100725

PATIENT
  Age: 51 Year
  Sex: Female
  Weight: 45 kg

DRUGS (7)
  1. TECFIDERA [Suspect]
     Indication: MULTIPLE SCLEROSIS
     Route: 048
  2. ACTONEL [Concomitant]
  3. AMPYRA [Concomitant]
  4. PROGESTERONE [Concomitant]
  5. BACLOFEN [Concomitant]
  6. XANAX [Concomitant]
  7. METHYLPHENIDATE [Concomitant]

REACTIONS (1)
  - Skin burning sensation [Unknown]
